FAERS Safety Report 4841957-4 (Version None)
Quarter: 2005Q4

REPORT INFORMATION
  Report Type: 
  Country: None (occurrence: None)
  Receive Date: 20051130
  Receipt Date: 20051012
  Transmission Date: 20060501
  Serious: Yes (Hospitalization)
  Sender: FDA-Public Use
  Company Number: US-GLAXOSMITHKLINE-A0578026A

PATIENT
  Age: 45 Year
  Sex: Male
  Weight: 75 kg

DRUGS (5)
  1. WELLBUTRIN XL [Suspect]
     Indication: DEPRESSION
     Dosage: 450MG PER DAY
     Route: 048
     Dates: start: 20031022, end: 20051009
  2. BUSPAR [Concomitant]
  3. ZOLOFT [Concomitant]
     Route: 048
  4. AMBIEN [Concomitant]
  5. ATIVAN [Concomitant]

REACTIONS (2)
  - AMNESIA [None]
  - GRAND MAL CONVULSION [None]
